FAERS Safety Report 7815555-4 (Version None)
Quarter: 2011Q4

REPORT INFORMATION
  Report Type: 
  Country: None (occurrence: None)
  Receive Date: 20111014
  Receipt Date: 20110929
  Transmission Date: 20120403
  Serious: Yes (Other)
  Sender: FDA-Public Use
  Company Number: US-ENDO PHARMACEUTICALS INC.-PHEN20110035

PATIENT
  Age: 64 Year
  Sex: Male

DRUGS (6)
  1. CLONAZEPAM [Suspect]
     Indication: DRUG DIVERSION
     Dosage: N/A
  2. HYDROCODONE BITARTRATE + ACETAMINOPHEN [Suspect]
     Indication: DRUG DIVERSION
     Dosage: N/A
  3. ZOLPIDEM TARTRATE [Suspect]
     Indication: DRUG DIVERSION
     Dosage: N/A
  4. ALPRAZOLAM [Suspect]
     Indication: DRUG DIVERSION
     Dosage: N/A
  5. PHENTERMINE HYDROCHLORIDE [Suspect]
     Indication: DRUG DIVERSION
     Dosage: N/A
  6. OXYCODONE HCL [Suspect]
     Indication: DRUG DIVERSION
     Dosage: N/A

REACTIONS (1)
  - DRUG DIVERSION [None]
